FAERS Safety Report 4431271-3 (Version None)
Quarter: 2004Q3

REPORT INFORMATION
  Report Type: 
  Country: None (occurrence: None)
  Receive Date: 20040818
  Receipt Date: 20040802
  Transmission Date: 20050211
  Serious: Yes (Other)
  Sender: FDA-Public Use
  Company Number: B0341735A

PATIENT
  Sex: Female

DRUGS (3)
  1. EPIVIR [Suspect]
     Indication: HIV INFECTION
  2. STAVUDINE (FORMULATION UNKNOWN) (STAVUDINE) [Suspect]
     Indication: HIV INFECTION
  3. INDINAVIR SULFATE (FORMULATION UNKNOWN) (INDINAVIR SULFATE) [Suspect]
     Indication: HIV INFECTION

REACTIONS (3)
  - DRUG EXPOSURE DURING PREGNANCY [None]
  - HYPERTENSION [None]
  - NEPHROLITHIASIS [None]
